FAERS Safety Report 24017277 (Version 1)
Quarter: 2024Q2

REPORT INFORMATION
  Report Type: Spontaneous
  Country: GB (occurrence: GB)
  Receive Date: 20240627
  Receipt Date: 20240627
  Transmission Date: 20240716
  Serious: Yes (Other)
  Sender: FDA-Public Use
  Company Number: GB-MHRA-MED-202406172139325360-JWHGZ

PATIENT
  Age: 48 Year
  Sex: Female

DRUGS (1)
  1. SERTRALINE [Suspect]
     Active Substance: SERTRALINE HYDROCHLORIDE
     Indication: Adverse drug reaction
     Dosage: 50 MILLIGRAM, ONCE A DAY (50MG ONCE A DAY)
     Route: 065
     Dates: start: 20230830, end: 20240504

REACTIONS (3)
  - Medication error [Unknown]
  - Abnormal weight gain [Not Recovered/Not Resolved]
  - Compulsive shopping [Recovered/Resolved]

NARRATIVE: CASE EVENT DATE: 20230830
